FAERS Safety Report 9669889 (Version 4)
Quarter: 2013Q4

REPORT INFORMATION
  Report Type: Report from Study
  Country: KR (occurrence: KR)
  Receive Date: 20131105
  Receipt Date: 20131223
  Transmission Date: 20140711
  Serious: No
  Sender: FDA-Public Use
  Company Number: PHHY2013KR124060

PATIENT
  Age: 32 Year
  Sex: Male

DRUGS (20)
  1. AMN107 [Suspect]
     Indication: CHRONIC MYELOID LEUKAEMIA
     Dosage: 800 MG, PER DAY
     Route: 048
     Dates: start: 20120802, end: 20120813
  2. AMN107 [Suspect]
     Dosage: 400 MG, PER DAY
     Route: 048
     Dates: start: 20120820, end: 20120917
  3. AMN107 [Suspect]
     Dosage: 800 MG, PER DAY
     Route: 048
     Dates: start: 20120924, end: 20121016
  4. AMN107 [Suspect]
     Dosage: 400 MG, PER DAY
     Route: 048
     Dates: start: 20121017, end: 20121030
  5. AMN107 [Suspect]
     Dosage: 800 MG, PER DAY
     Route: 048
     Dates: start: 20121031
  6. METOCLOPRAMIDE HCL [Concomitant]
     Indication: NAUSEA
     Dosage: 60 MG, UNK
     Route: 042
     Dates: start: 20120918, end: 20120918
  7. METOCLOPRAMIDE HCL [Concomitant]
     Dosage: 60 MG, UNK
     Route: 042
     Dates: start: 20120923, end: 20120926
  8. LANSOPRAZOLE [Concomitant]
     Indication: PEPTIC ULCER
     Dosage: 60 MG, UNK
     Route: 048
     Dates: start: 20120919, end: 20121016
  9. ULTRACET [Concomitant]
     Indication: PAIN
     Dosage: 2175 MG, UNK
     Route: 048
     Dates: start: 20120924
  10. GRASIN [Concomitant]
     Indication: NEUTROPENIA
     Dosage: 300 UG, UNK
     Route: 058
     Dates: start: 20120813, end: 20120813
  11. TEPRENONE [Concomitant]
     Indication: PEPTIC ULCER
     Dosage: 150 MG, UNK
     Route: 048
     Dates: start: 20120916, end: 20120917
  12. SODIUM ALGINATE [Concomitant]
     Indication: MYCOTOXICOSIS
     Dosage: 120 ML, UNK
     Route: 048
     Dates: start: 20120917, end: 20120923
  13. MOSAPRIDE [Concomitant]
     Indication: DYSPNOEA
     Dosage: 15 MG, UNK
     Route: 048
     Dates: start: 20120926, end: 20121002
  14. CEFTAZIDIME [Concomitant]
     Indication: ANTIBIOTIC THERAPY
     Dosage: 600 MG, UNK
     Route: 042
     Dates: start: 20120924, end: 20120926
  15. LEVOFLOXACIN [Concomitant]
     Indication: BLOOD URIC ACID
     Dosage: 500 MG, UNK
     Route: 048
     Dates: start: 20120820, end: 20120824
  16. BOEHMITE [Concomitant]
     Indication: GASTRITIS
     Route: 048
     Dates: start: 20120917, end: 20120923
  17. ESOMEPRAZOLE [Concomitant]
     Indication: GASTROINTESTINAL DISORDER
     Dosage: 40 MG, UNK
     Route: 042
     Dates: start: 20120917, end: 20120917
  18. PHENIRAMINE [Concomitant]
     Indication: RED BLOOD CELL COUNT
     Dosage: 4 MG, UNK
     Route: 042
     Dates: start: 20120813, end: 20120813
  19. PHENIRAMINE [Concomitant]
     Dosage: 4 MG, UNK
     Route: 042
     Dates: start: 20120820, end: 20120820
  20. TYLENOL [Concomitant]
     Indication: PAIN
     Dosage: 650 MG, UNK
     Route: 048
     Dates: start: 20120820, end: 20120903

REACTIONS (6)
  - Gastrointestinal disorder [Not Recovered/Not Resolved]
  - Constipation [Not Recovered/Not Resolved]
  - Abdominal pain [Recovered/Resolved]
  - Anal inflammation [Not Recovered/Not Resolved]
  - Gastritis [Recovered/Resolved]
  - Gastrooesophageal reflux disease [Recovered/Resolved]
